FAERS Safety Report 5406179-7 (Version None)
Quarter: 2007Q3

REPORT INFORMATION
  Report Type: 
  Country: None (occurrence: None)
  Receive Date: 20070806
  Receipt Date: 20070802
  Transmission Date: 20080115
  Serious: Yes (Death)
  Sender: FDA-Public Use
  Company Number: JP-ASTRAZENECA-2007AP04205

PATIENT
  Age: 28303 Day
  Sex: Male
  Weight: 50 kg

DRUGS (8)
  1. OMEPRAZOLE [Suspect]
     Indication: GASTRIC ULCER
     Route: 048
     Dates: start: 20070425, end: 20070613
  2. TICLOPIDINE HCL [Suspect]
     Indication: ANGINA PECTORIS
     Route: 048
     Dates: start: 20070418, end: 20070530
  3. ANPLAG [Concomitant]
     Indication: ARTERIOSCLEROSIS OBLITERANS
     Route: 048
     Dates: start: 20070330, end: 20070607
  4. MICARDIS [Concomitant]
     Indication: HYPERTENSION
     Route: 048
     Dates: start: 20070418, end: 20070604
  5. DOXAZOSIN MESYLATE [Concomitant]
     Indication: HYPERTENSION
     Route: 048
     Dates: start: 20070519, end: 20070530
  6. LASIX [Concomitant]
     Indication: CARDIAC FAILURE
     Route: 048
     Dates: start: 20070522, end: 20070613
  7. ALLOPURINOL [Concomitant]
     Indication: HYPERURICAEMIA
     Route: 048
     Dates: end: 20070607
  8. ASPIRIN [Concomitant]
     Indication: ANGINA PECTORIS
     Route: 048
     Dates: end: 20070721

REACTIONS (2)
  - CHOLESTASIS [None]
  - TOXIC EPIDERMAL NECROLYSIS [None]
